FAERS Safety Report 4428957-3 (Version None)
Quarter: 2004Q3

REPORT INFORMATION
  Report Type: 
  Country: None (occurrence: None)
  Receive Date: 20040818
  Receipt Date: 20040618
  Transmission Date: 20050211
  Serious: No
  Sender: FDA-Public Use
  Company Number: US-GLAXOSMITHKLINE-A0515237A

PATIENT
  Sex: Female

DRUGS (2)
  1. LOTRONEX [Suspect]
     Indication: IRRITABLE BOWEL SYNDROME
     Dosage: 1MG PER DAY
     Route: 048
     Dates: start: 20040401
  2. ATIVAN [Concomitant]

REACTIONS (4)
  - ABDOMINAL DISCOMFORT [None]
  - ASTHENIA [None]
  - DEPRESSION [None]
  - DRUG INEFFECTIVE [None]
